FAERS Safety Report 19720464 (Version 1)
Quarter: 2021Q3

REPORT INFORMATION
  Report Type: Spontaneous
  Country: ES (occurrence: ES)
  Receive Date: 20210819
  Receipt Date: 20210819
  Transmission Date: 20211014
  Serious: Yes (Life-Threatening, Hospitalization, Other)
  Sender: FDA-Public Use
  Company Number: ES-AUROBINDO-AUR-APL-2021-035555

PATIENT
  Age: 78 Year
  Sex: Female
  Weight: 77.1 kg

DRUGS (8)
  1. LYRICA [Concomitant]
     Active Substance: PREGABALIN
     Indication: NEURALGIA
     Dosage: 75 MILLIGRAM, ONCE A DAY
     Route: 048
  2. MELPHALAN. [Suspect]
     Active Substance: MELPHALAN
     Indication: PLASMA CELL MYELOMA
     Dosage: LAST DOSE RECEIVED ON 30?APR?2021
     Route: 048
     Dates: start: 20210316
  3. VELCADE [Suspect]
     Active Substance: BORTEZOMIB
     Indication: PLASMA CELL MYELOMA
     Dosage: LAST DOSE RECEIVED ON 27?APR?2021
     Route: 058
     Dates: start: 20210316
  4. ADIRO [Concomitant]
     Active Substance: ASPIRIN
     Indication: THROMBOSIS PROPHYLAXIS
     Dosage: 300 MILLIGRAM, ONCE A DAY
     Route: 048
  5. FUROSEMIDE. [Concomitant]
     Active Substance: FUROSEMIDE
     Indication: DIURETIC THERAPY
     Dosage: UNK
     Route: 048
     Dates: start: 20210427
  6. ZANIDIP [Concomitant]
     Active Substance: LERCANIDIPINE HYDROCHLORIDE
     Indication: HYPERTENSION
     Dosage: 20 MILLIGRAM, ONCE A DAY
     Route: 048
  7. IXIA PLUS [Concomitant]
     Active Substance: HYDROCHLOROTHIAZIDE\OLMESARTAN MEDOXOMIL
     Indication: HYPERTENSION
     Dosage: 40/125 G
     Route: 048
  8. PREDNISONE. [Suspect]
     Active Substance: PREDNISONE
     Indication: PLASMA CELL MYELOMA
     Dosage: LAST  DOSE RECEIVED ON 30?APR?2021
     Route: 048
     Dates: start: 20210316

REACTIONS (1)
  - Cardiac failure acute [Recovered/Resolved]

NARRATIVE: CASE EVENT DATE: 20210430
